FAERS Safety Report 9154348 (Version 1)
Quarter: 2013Q1

REPORT INFORMATION
  Report Type: Spontaneous
  Country: US (occurrence: None)
  Receive Date: 20130308
  Receipt Date: 20130308
  Transmission Date: 20140127
  Serious: Yes (Other)
  Sender: FDA-Public Use
  Company Number: None

PATIENT
  Age: 51 Year
  Sex: Female

DRUGS (1)
  1. KETOROLAC [Suspect]
     Indication: PAIN
     Dates: start: 20130306, end: 20130306

REACTIONS (5)
  - Nephrolithiasis [None]
  - Infusion site erythema [None]
  - Infusion site pruritus [None]
  - Infusion site rash [None]
  - Infusion site pain [None]
